FAERS Safety Report 24979297 (Version 1)
Quarter: 2025Q1

REPORT INFORMATION
  Report Type: Spontaneous
  Country: SE (occurrence: SE)
  Receive Date: 20250218
  Receipt Date: 20250218
  Transmission Date: 20250409
  Serious: Yes (Hospitalization, Disabling)
  Sender: TAKEDA
  Company Number: None

PATIENT
  Age: 11 Year
  Sex: Female
  Weight: 30 kg

DRUGS (5)
  1. ENTYVIO [Suspect]
     Active Substance: VEDOLIZUMAB
     Indication: Colitis ulcerative
     Dosage: 180 MILLIGRAM, Q2WEEKS
     Dates: start: 20240813, end: 20240828
  2. ENTYVIO [Suspect]
     Active Substance: VEDOLIZUMAB
     Dosage: 180 MILLIGRAM, Q2WEEKS
     Dates: start: 20240827
  3. AZATHIOPRINE [Concomitant]
     Active Substance: AZATHIOPRINE
  4. PENTASA [Concomitant]
     Active Substance: MESALAMINE
  5. PENTASA [Concomitant]
     Active Substance: MESALAMINE

REACTIONS (1)
  - Pancreatitis [Recovered/Resolved with Sequelae]

NARRATIVE: CASE EVENT DATE: 20240815
